FAERS Safety Report 7670565 (Version 3)
Quarter: 2013Q2

REPORT INFORMATION
  Report Type: Spontaneous
  Country: US (occurrence: US)
  Receive Date: 20101116
  Receipt Date: 20130507
  Transmission Date: 20140414
  Serious: Yes (Hospitalization, Other)
  Sender: FDA-Public Use
  Company Number: US-ROCHE-718960

PATIENT
  Age: 15 Year
  Sex: Male

DRUGS (2)
  1. ACCUTANE [Suspect]
     Indication: ACNE CYSTIC
     Dosage: 40 MG TWICE DAILY, ALTERNATE WITH 40 MG ONCE DAILY
     Route: 048
     Dates: start: 19991012, end: 19991115
  2. ACCUTANE [Suspect]
     Route: 048
     Dates: start: 19991115, end: 20000327

REACTIONS (15)
  - Crohn^s disease [Unknown]
  - Colitis ulcerative [Unknown]
  - Portal vein thrombosis [Unknown]
  - Gastrointestinal injury [Unknown]
  - Inflammatory bowel disease [Unknown]
  - Depression [Unknown]
  - Suicidal ideation [Unknown]
  - Musculoskeletal pain [Unknown]
  - Oral herpes [Unknown]
  - Dizziness [Recovered/Resolved]
  - Dry skin [Unknown]
  - Lip dry [Unknown]
  - Fatigue [Unknown]
  - Dry eye [Unknown]
  - Epistaxis [Unknown]
